FAERS Safety Report 7801522-3 (Version None)
Quarter: 2011Q4

REPORT INFORMATION
  Report Type: 
  Country: None (occurrence: None)
  Receive Date: 20111007
  Receipt Date: 20110928
  Transmission Date: 20120403
  Serious: Yes (Hospitalization, Other)
  Sender: FDA-Public Use
  Company Number: US-ABBOTT-11P-163-0860170-00

PATIENT
  Sex: Female
  Weight: 59.02 kg

DRUGS (3)
  1. MULTIPLE UNKNOWN MEDICATIONS [Concomitant]
     Indication: PRODUCT USED FOR UNKNOWN INDICATION
  2. HUMIRA [Suspect]
     Dosage: INITIAL DOSE.
     Dates: start: 20110929, end: 20110929
  3. HUMIRA [Suspect]
     Indication: CROHN'S DISEASE
     Dosage: PATIENT NOT SURE OF THE DOSE.
     Dates: start: 20080301

REACTIONS (5)
  - DEHYDRATION [None]
  - ARTHRALGIA [None]
  - FREQUENT BOWEL MOVEMENTS [None]
  - ABDOMINAL PAIN [None]
  - RECTAL HAEMORRHAGE [None]
